FAERS Safety Report 9226248 (Version 1)
Quarter: 2013Q2

REPORT INFORMATION
  Report Type: Spontaneous
  Country: AR (occurrence: AR)
  Receive Date: 20130411
  Receipt Date: 20130411
  Transmission Date: 20140414
  Serious: Yes (Hospitalization, Other)
  Sender: FDA-Public Use
  Company Number: AR-PFIZER INC-2013109421

PATIENT
  Age: 11 Year
  Sex: Male

DRUGS (1)
  1. GENOTROPIN [Suspect]
     Indication: GROWTH HORMONE DEFICIENCY
     Dosage: 0.6-1MG/7XWEEK
     Dates: start: 20060102

REACTIONS (7)
  - Convulsion [Recovered/Resolved]
  - Hypothermia [Unknown]
  - Acne [Unknown]
  - Rhinitis [Unknown]
  - Eye infection [Unknown]
  - Infection [Unknown]
  - Arthropod bite [Unknown]
